FAERS Safety Report 6402914-X (Version None)
Quarter: 2009Q4

REPORT INFORMATION
  Report Type: 
  Country: None (occurrence: None)
  Receive Date: 20091014
  Receipt Date: 20091014
  Transmission Date: 20100525
  Serious: No
  Sender: FDA-Public Use
  Company Number: None

PATIENT
  Age: 3 Year
  Sex: Male
  Weight: 16.5 kg

DRUGS (1)
  1. VINCRISTINE [Suspect]
     Indication: BRAIN NEOPLASM
     Dosage: 1MG ONCE IV
     Route: 042
     Dates: start: 20090717

REACTIONS (7)
  - COUGH [None]
  - EYE SWELLING [None]
  - OXYGEN SATURATION DECREASED [None]
  - PALLOR [None]
  - RASH [None]
  - URTICARIA [None]
  - VOMITING [None]
